FAERS Safety Report 14836737 (Version 1)
Quarter: 2018Q2

REPORT INFORMATION
  Report Type: Spontaneous
  Country: JP (occurrence: JP)
  Receive Date: 20180502
  Receipt Date: 20180502
  Transmission Date: 20180711
  Serious: Yes (Hospitalization)
  Sender: FDA-Public Use
  Company Number: JP-ARBOR PHARMACEUTICALS, LLC-JP-2018ARB000528

PATIENT
  Sex: Female

DRUGS (1)
  1. GLIADEL [Suspect]
     Active Substance: CARMUSTINE
     Indication: GLIOBLASTOMA
     Dosage: 7.7 MG, UNKNOWN

REACTIONS (2)
  - Impaired healing [Recovered/Resolved]
  - Infection [Recovered/Resolved]
